FAERS Safety Report 5156580-4 (Version None)
Quarter: 2006Q4

REPORT INFORMATION
  Report Type: 
  Country: None (occurrence: None)
  Receive Date: 20061122
  Receipt Date: 20061031
  Transmission Date: 20070319
  Serious: Yes (Death, Life-Threatening, Hospitalization)
  Sender: FDA-Public Use
  Company Number: FR-BOEHRINGER INGELHEIM GMBH, GERMANY-2006-FF-01196FF

PATIENT
  Age: 41 Year
  Sex: Male
  Weight: 59 kg

DRUGS (11)
  1. APTIVUS [Suspect]
     Indication: HIV INFECTION
     Dosage: TPV/RTV 250MG/ 200MG B.I.D
     Route: 048
     Dates: start: 20060315, end: 20060914
  2. APTIVUS [Suspect]
     Dosage: TPV/RTV 500MG/ 200MG B.I.D
     Route: 048
     Dates: start: 20060914, end: 20061022
  3. LOVENOX [Suspect]
     Route: 058
     Dates: start: 20061019, end: 20061020
  4. ANTICOAGULANT THERAPY [Concomitant]
     Indication: PULMONARY EMBOLISM
  5. FUNGIZONE [Concomitant]
     Route: 048
  6. MEDROL [Concomitant]
     Route: 048
     Dates: start: 20060815
  7. NEORAL [Concomitant]
     Route: 048
     Dates: start: 20060813
  8. CELLCEPT [Concomitant]
     Route: 048
     Dates: start: 20060808
  9. VIREAD [Concomitant]
     Indication: HIV INFECTION
     Route: 048
     Dates: start: 20060301
  10. FUZEON [Concomitant]
     Indication: HIV INFECTION
     Route: 042
  11. AVLOCARDYL [Concomitant]

REACTIONS (23)
  - ASPERGILLOSIS [None]
  - BRAIN ABSCESS [None]
  - CARDIAC FAILURE [None]
  - CHOLESTASIS [None]
  - CYTOLYTIC HEPATITIS [None]
  - CYTOMEGALOVIRUS INFECTION [None]
  - GASTRITIS [None]
  - HAEMATOMA [None]
  - HAEMODIALYSIS [None]
  - HAEMODYNAMIC INSTABILITY [None]
  - HAEMORRHAGE INTRACRANIAL [None]
  - HEPATIC CIRRHOSIS [None]
  - HEPATIC FAILURE [None]
  - LACTIC ACIDOSIS [None]
  - MYCOTIC ANEURYSM [None]
  - OEDEMA [None]
  - PORTAL HYPERTENSION [None]
  - PULMONARY EMBOLISM [None]
  - PULMONARY OEDEMA [None]
  - RESPIRATORY TRACT INFECTION BACTERIAL [None]
  - SIMPLE PARTIAL SEIZURES [None]
  - STAPHYLOCOCCAL SEPSIS [None]
  - VARICES OESOPHAGEAL [None]
